FAERS Safety Report 10067845 (Version 3)
Quarter: 2016Q4

REPORT INFORMATION
  Report Type: Report from Study
  Country: JP (occurrence: JP)
  Receive Date: 20140409
  Receipt Date: 20161019
  Transmission Date: 20170206
  Serious: Yes (Hospitalization)
  Sender: FDA-Public Use
  Company Number: JP-MPIJNJ-2014JNJ001228

PATIENT
  Age: 61 Year
  Sex: Male

DRUGS (9)
  1. LENADEX [Concomitant]
     Active Substance: DEXAMETHASONE ACETATE
     Dosage: UNK
     Route: 048
  2. VELCADE [Suspect]
     Active Substance: BORTEZOMIB
     Indication: PLASMA CELL MYELOMA
     Dosage: 2.1 MG/M2, UNK
     Route: 058
     Dates: start: 20140314
  3. FAMOTIDINE. [Concomitant]
     Active Substance: FAMOTIDINE
     Indication: PROPHYLAXIS
     Dosage: 20 MG, QD
     Route: 048
     Dates: start: 20140314
  4. PURSENNID                          /00571902/ [Concomitant]
     Active Substance: SENNOSIDES A AND B
     Indication: CONSTIPATION
     Dosage: 24 MG, QD
     Route: 048
     Dates: start: 20140316
  5. CEFDINIR. [Concomitant]
     Active Substance: CEFDINIR
     Indication: TOOTH EXTRACTION
     Dosage: 300 MG, QD
     Route: 048
     Dates: start: 20140312, end: 20140316
  6. VELCADE [Suspect]
     Active Substance: BORTEZOMIB
     Dosage: UNK
     Route: 058
  7. LENADEX [Concomitant]
     Active Substance: DEXAMETHASONE ACETATE
     Indication: PLASMA CELL MYELOMA
     Dosage: 20 MG, QD
     Route: 048
     Dates: start: 20140314
  8. CRAVIT [Concomitant]
     Active Substance: LEVOFLOXACIN
     Indication: COLITIS
     Dosage: 500 MG, QD
     Route: 048
     Dates: start: 20140326, end: 20140330
  9. MAGLAX [Concomitant]
     Active Substance: MAGNESIUM OXIDE
     Indication: CONSTIPATION
     Dosage: 1980 MG, QD
     Route: 048
     Dates: start: 20140318

REACTIONS (2)
  - Neuropathy peripheral [Unknown]
  - Amoebic colitis [Recovered/Resolved]

NARRATIVE: CASE EVENT DATE: 20140328
